FAERS Safety Report 6253333-0 (Version None)
Quarter: 2009Q3

REPORT INFORMATION
  Report Type: 
  Country: None (occurrence: None)
  Receive Date: 20090701
  Receipt Date: 20090618
  Transmission Date: 20100115
  Serious: Yes (Hospitalization)
  Sender: FDA-Public Use
  Company Number: PHHY2009HU22672

PATIENT
  Age: 3 Year
  Sex: Male

DRUGS (1)
  1. LEPONEX [Suspect]
     Dosage: 50 MG, ONCE/SINGLE
     Route: 048

REACTIONS (18)
  - ACCIDENTAL EXPOSURE [None]
  - ATAXIA [None]
  - BRADYCARDIA [None]
  - CYANOSIS [None]
  - DRUG TOXICITY [None]
  - GAIT DISTURBANCE [None]
  - GRAND MAL CONVULSION [None]
  - HYPOKALAEMIA [None]
  - HYPOREFLEXIA [None]
  - HYPOTHERMIA [None]
  - HYPOTONIA [None]
  - INSOMNIA [None]
  - METABOLIC ACIDOSIS [None]
  - NEUROLOGICAL SYMPTOM [None]
  - OXYGEN SATURATION DECREASED [None]
  - SOMNOLENCE [None]
  - SYNCOPE [None]
  - VOMITING [None]
